FAERS Safety Report 4903427-4 (Version None)
Quarter: 2006Q1

REPORT INFORMATION
  Report Type: 
  Country: None (occurrence: None)
  Receive Date: 20060206
  Receipt Date: 20060206
  Transmission Date: 20060701
  Serious: Yes (Hospitalization)
  Sender: FDA-Public Use
  Company Number: None

PATIENT
  Age: 31 Year
  Sex: Female

DRUGS (1)
  1. HYPAQUE [Suspect]
     Dosage: X 2 DOSES GIVEN @ 1200 + 1520  POSSIBLE D/T ANOTHER MED

REACTIONS (5)
  - CARDIO-RESPIRATORY ARREST [None]
  - DYSPNOEA [None]
  - ERYTHEMA [None]
  - LOSS OF CONSCIOUSNESS [None]
  - PRURITUS [None]
